FAERS Safety Report 9904622 (Version 1)
Quarter: 2014Q1

REPORT INFORMATION
  Report Type: Spontaneous
  Country: US (occurrence: US)
  Receive Date: 20140218
  Receipt Date: 20140218
  Transmission Date: 20141002
  Serious: Yes (Other)
  Sender: FDA-Public Use
  Company Number: US-BAYER-2014-023602

PATIENT
  Age: 33 Year
  Sex: Female

DRUGS (1)
  1. MIRENA [Suspect]
     Dosage: 20 MCG/24HR, CONT
     Route: 015
     Dates: start: 200909, end: 20101116

REACTIONS (12)
  - Intra-abdominal haemorrhage [None]
  - Abdominal pain [None]
  - Constipation [None]
  - Genital haemorrhage [None]
  - Oophorectomy [None]
  - Infertility female [None]
  - Ovarian cyst [None]
  - Ovarian disorder [None]
  - Inflammation [None]
  - Injury [None]
  - Emotional distress [None]
  - Adnexa uteri pain [None]
